FAERS Safety Report 7569242-0 (Version None)
Quarter: 2011Q2

REPORT INFORMATION
  Report Type: 
  Country: None (occurrence: None)
  Receive Date: 20110623
  Receipt Date: 20110616
  Transmission Date: 20111010
  Serious: Yes (Hospitalization)
  Sender: FDA-Public Use
  Company Number: PHHO2011DE10407

PATIENT
  Sex: Male

DRUGS (5)
  1. SIMULECT [Suspect]
     Indication: RENAL TRANSPLANT
     Dosage: 20 MG, ONCE/SINGLE
     Route: 042
     Dates: start: 20110503, end: 20110503
  2. SANDIMMUNE [Concomitant]
     Indication: RENAL TRANSPLANT
     Dosage: 200 MG
     Route: 048
     Dates: start: 20110503
  3. SIMULECT [Suspect]
     Dosage: 20 MG, ONCE/SINGLE
     Route: 042
     Dates: start: 20110508, end: 20110508
  4. NO TREATMENT RECEIVED [Suspect]
     Indication: RENAL TRANSPLANT
     Dosage: NO TREATMENT
  5. MYFORTIC [Suspect]
     Indication: RENAL TRANSPLANT
     Dosage: 2160 MG
     Route: 048
     Dates: start: 20110503, end: 20110615

REACTIONS (3)
  - LEUKOPENIA [None]
  - GASTROENTERITIS [None]
  - NEPHROGENIC ANAEMIA [None]
